FAERS Safety Report 15288902 (Version 5)
Quarter: 2019Q2

REPORT INFORMATION
  Report Type: Spontaneous
  Country: DE (occurrence: DE)
  Receive Date: 20180817
  Receipt Date: 20190418
  Transmission Date: 20190711
  Serious: Yes (Hospitalization)
  Sender: FDA-Public Use
  Company Number: GXKR2009DE02320

PATIENT
  Age: 68 Year
  Sex: Male

DRUGS (30)
  1. AMLODIPINE [Suspect]
     Active Substance: AMLODIPINE BESYLATE
     Dosage: 10 MG, UNK
     Route: 065
  2. ACERBON [Suspect]
     Active Substance: LISINOPRIL
     Dosage: 20 MG IN THE MORNING, 10 MG IN THE EVENING
     Route: 048
     Dates: start: 1996, end: 20081027
  3. NEXAVAR [Suspect]
     Active Substance: SORAFENIB
     Indication: METASTATIC RENAL CELL CARCINOMA
     Dosage: 400 MG, BID
     Route: 048
     Dates: start: 20080608, end: 20080608
  4. METHIZOL [Concomitant]
     Active Substance: METHIMAZOLE
     Indication: HYPERTHYROIDISM
     Dosage: 5 MG, UNK
     Route: 065
     Dates: start: 20080201
  5. PARACETAMOL [Concomitant]
     Active Substance: ACETAMINOPHEN
     Indication: PAIN
     Dosage: AM 09.08.08 NUR 2 TBL. EINGENOMMEN
     Route: 065
     Dates: start: 20080807, end: 20080809
  6. PARACETAMOL [Concomitant]
     Active Substance: ACETAMINOPHEN
     Dosage: 500 MG, QD
     Route: 048
     Dates: start: 20080807, end: 20080809
  7. ZOMETA [Suspect]
     Active Substance: ZOLEDRONIC ACID
     Indication: METASTASES TO BONE
     Dosage: 4 MG, QMO
     Route: 017
     Dates: start: 20080618, end: 20080716
  8. NEXAVAR [Suspect]
     Active Substance: SORAFENIB
     Dosage: 200 MG - 0 - 400 MG
     Route: 048
     Dates: start: 20080709, end: 20080809
  9. NEXAVAR [Suspect]
     Active Substance: SORAFENIB
     Dosage: DOSAGE FORM: 82
     Route: 048
     Dates: start: 20080910
  10. LOCOL [Concomitant]
     Indication: HYPERLIPIDAEMIA
     Dosage: 80 MG, QD
     Route: 048
     Dates: start: 20080601
  11. AMARYL [Concomitant]
     Active Substance: GLIMEPIRIDE
     Indication: TYPE 2 DIABETES MELLITUS
     Dosage: 1 MG, QD
     Route: 048
     Dates: start: 20080201
  12. TOREM [Concomitant]
     Active Substance: TORSEMIDE
     Indication: CARDIAC FAILURE
     Dosage: 5 MG, QD
     Route: 048
     Dates: start: 20080601
  13. AMLODIPINE [Suspect]
     Active Substance: AMLODIPINE BESYLATE
     Indication: HYPERTENSION
     Dosage: 5 MG, QD
     Route: 048
     Dates: start: 20080601
  14. NEXAVAR [Suspect]
     Active Substance: SORAFENIB
     Dosage: 200 MG, BID (FIRST 2X2 TBL. DAILY, FROM 09 JUL 08 ONLY 102 TBL., RENEWED GIFT AFTER PAUSING 10 SEP )
     Route: 048
     Dates: start: 20080910
  15. ALDACTONE [Concomitant]
     Active Substance: SPIRONOLACTONE
     Indication: CARDIAC FAILURE
     Dosage: 25 MG, OT
     Route: 048
     Dates: start: 20080601
  16. BELOC ZOK [Concomitant]
     Active Substance: METOPROLOL SUCCINATE
     Indication: ARRHYTHMIA
     Dosage: 95 MG, BID
     Route: 048
     Dates: start: 20001001
  17. BELOC ZOK [Concomitant]
     Active Substance: METOPROLOL SUCCINATE
     Dosage: 190 MG, UNK
     Route: 065
  18. TOREM [Concomitant]
     Active Substance: TORSEMIDE
     Dosage: 5 MG, UNK
     Dates: start: 20080601
  19. AMLODIPINE [Suspect]
     Active Substance: AMLODIPINE BESYLATE
     Dosage: DAILY DOSE: 10 MG MILLIGRAM(S) EVERY DAY
     Route: 048
     Dates: start: 20080601
  20. ACERBON [Suspect]
     Active Substance: LISINOPRIL
     Indication: HYPERTENSION
     Dosage: EARLY 20MG, 10 MG IN EVENING
     Route: 065
     Dates: start: 1996, end: 20081027
  21. NEXAVAR [Suspect]
     Active Substance: SORAFENIB
     Dosage: 800 MG DAILY, DOSAGE FORM: 82, APPLICATION RESTARTED: 10-SEP-2008
     Route: 048
     Dates: start: 20080608, end: 20080809
  22. DIGITOXIN [Concomitant]
     Active Substance: DIGITOXIN
     Indication: CARDIAC FAILURE
     Dosage: 0.07 MG, QD
     Route: 048
     Dates: start: 20080601
  23. CLOPIDOGREL [Concomitant]
     Active Substance: CLOPIDOGREL BISULFATE
     Indication: STENT PLACEMENT
     Dosage: 75 MG, QD
     Route: 048
     Dates: start: 20080301
  24. PENTALONG [Concomitant]
     Active Substance: PENTAERYTHRITOL TETRANITRATE
     Indication: CORONARY ARTERY DISEASE
     Dosage: 80 MG, QD
     Route: 048
     Dates: start: 20060601
  25. ASPIRIN. [Concomitant]
     Active Substance: ASPIRIN
     Indication: CORONARY ARTERY DISEASE
     Dosage: 100 MG, UNK
     Route: 065
     Dates: start: 20001101
  26. GLUCOBAY [Concomitant]
     Active Substance: ACARBOSE
     Indication: TYPE 2 DIABETES MELLITUS
     Dosage: 50 MG, TID
     Route: 048
     Dates: start: 1996
  27. TAMSULOSIN [Suspect]
     Active Substance: TAMSULOSIN
     Indication: BENIGN PROSTATIC HYPERPLASIA
     Dosage: 0.4 MG, QD
     Route: 048
  28. NEXAVAR [Suspect]
     Active Substance: SORAFENIB
     Dosage: 600 MG, QD
     Route: 048
     Dates: start: 20080709, end: 20080809
  29. GLUCOBAY [Concomitant]
     Active Substance: ACARBOSE
     Dosage: 150 MG, UNK
     Route: 065
     Dates: start: 1996
  30. PENTALONG [Concomitant]
     Active Substance: PENTAERYTHRITOL TETRANITRATE
     Dosage: 240 MG, UNK
     Route: 065
     Dates: start: 20060601

REACTIONS (17)
  - Mouth swelling [Unknown]
  - Dysphagia [Unknown]
  - Swollen tongue [Unknown]
  - Speech disorder [Recovered/Resolved]
  - Gamma-glutamyltransferase increased [Unknown]
  - Swollen tongue [Recovered/Resolved]
  - Platelet count increased [Unknown]
  - Oedema mucosal [Recovered/Resolved]
  - Angioedema [Recovered/Resolved]
  - Mouth swelling [Recovered/Resolved]
  - Dysphagia [Recovered/Resolved]
  - Blood sodium decreased [Unknown]
  - Haemoglobin decreased [Unknown]
  - C-reactive protein increased [Unknown]
  - Albumin urine present [Unknown]
  - Red blood cell sedimentation rate increased [Unknown]
  - Lip swelling [Recovered/Resolved]

NARRATIVE: CASE EVENT DATE: 20080810
